FAERS Safety Report 14815653 (Version 1)
Quarter: 2018Q2

REPORT INFORMATION
  Report Type: Spontaneous
  Country: HU (occurrence: HU)
  Receive Date: 20180426
  Receipt Date: 20180426
  Transmission Date: 20180711
  Serious: Yes (Other)
  Sender: FDA-Public Use
  Company Number: HU-BAXTER-2018BAX012542

PATIENT
  Age: 49 Year
  Sex: Female

DRUGS (15)
  1. XELODA [Suspect]
     Active Substance: CAPECITABINE
     Dosage: DOSE RE-INTRODUCED
     Route: 065
  2. AFINITOR [Suspect]
     Active Substance: EVEROLIMUS
     Indication: BREAST CANCER
     Dosage: UNK ()
     Route: 065
  3. TAXOTERE [Suspect]
     Active Substance: DOCETAXEL
     Indication: BREAST CANCER
     Dosage: UNK ()
     Route: 065
     Dates: start: 20141216, end: 20150416
  4. XELODA [Suspect]
     Active Substance: CAPECITABINE
     Indication: BREAST CANCER
     Dosage: UNK ()
     Route: 065
     Dates: start: 20160627, end: 20170101
  5. FLUOROURACIL. [Suspect]
     Active Substance: FLUOROURACIL
     Indication: BREAST CANCER
     Dosage: 3-3 COURSES ()
     Route: 065
  6. TAMOXIFEN [Suspect]
     Active Substance: TAMOXIFEN
     Indication: BREAST CANCER
     Dosage: UNK ()
     Route: 065
  7. METHOTREXATE. [Suspect]
     Active Substance: METHOTREXATE
     Indication: BREAST CANCER
     Dosage: 3-3 COURSES ()
     Route: 065
  8. LETROZOLE. [Suspect]
     Active Substance: LETROZOLE
     Indication: BREAST CANCER
     Dosage: UNK ()
     Route: 065
  9. FASLODEX [Suspect]
     Active Substance: FULVESTRANT
     Indication: BREAST CANCER
     Dosage: ()
     Route: 065
  10. ENDOXAN 1G POR OLDATOS INJEKCI?HOZ [Suspect]
     Active Substance: CYCLOPHOSPHAMIDE
     Indication: BREAST CANCER
     Dosage: 3-3 COURSES ()
     Route: 065
  11. TAXOTERE [Suspect]
     Active Substance: DOCETAXEL
     Dosage: DOSE RE-INTRODUCED
     Route: 065
  12. TAXOL [Suspect]
     Active Substance: PACLITAXEL
     Indication: BREAST CANCER
     Dosage: UNK ()
     Route: 065
     Dates: start: 20111128, end: 20120220
  13. EPIRUBICIN [Suspect]
     Active Substance: EPIRUBICIN
     Dosage: DOSE RE-INTRODUCED
     Route: 065
  14. TAXOL [Suspect]
     Active Substance: PACLITAXEL
     Dosage: DOSE RE-INTRODUCED
     Route: 065
  15. EPIRUBICIN [Suspect]
     Active Substance: EPIRUBICIN
     Indication: BREAST CANCER
     Dosage: UNK ()
     Route: 065
     Dates: start: 20111128, end: 20120220

REACTIONS (23)
  - Metabolic disorder [Unknown]
  - Cachexia [Unknown]
  - Metastases to muscle [Unknown]
  - Cough [Unknown]
  - Weight increased [Unknown]
  - Adenocarcinoma [Unknown]
  - Dyspnoea [Unknown]
  - Pulmonary mass [Unknown]
  - Inflammation [Unknown]
  - Febrile neutropenia [Unknown]
  - Lymphangiosis carcinomatosa [Unknown]
  - Metastasis [Unknown]
  - Renal impairment [Unknown]
  - Anaemia [Unknown]
  - Metastases to bone [Unknown]
  - Malignant neoplasm progression [Unknown]
  - Metastases to liver [Unknown]
  - Metastases to chest wall [Unknown]
  - Metastases to lymph nodes [Unknown]
  - Pleural effusion [Unknown]
  - Tumour marker increased [Unknown]
  - Drug resistance [Unknown]
  - Breast cancer [Unknown]

NARRATIVE: CASE EVENT DATE: 20110919
